FAERS Safety Report 21333776 (Version 1)
Quarter: 2022Q3

REPORT INFORMATION
  Report Type: Spontaneous
  Country: US (occurrence: US)
  Receive Date: 20220914
  Receipt Date: 20220914
  Transmission Date: 20221027
  Serious: No
  Sender: FDA-Public Use
  Company Number: US-PFIZER INC-202201150658

PATIENT
  Age: 59 Year
  Sex: Female
  Weight: 74.84 kg

DRUGS (3)
  1. DEPO-ESTRADIOL [Suspect]
     Active Substance: ESTRADIOL CYPIONATE
     Indication: Menopausal symptoms
     Dosage: UNK
     Dates: start: 20220207
  2. DEPO-ESTRADIOL [Suspect]
     Active Substance: ESTRADIOL CYPIONATE
     Indication: Hormone replacement therapy
  3. VITAMIN D NOS [Concomitant]
     Active Substance: VITAMIN D NOS
     Dosage: 50000 IU

REACTIONS (1)
  - Breast tenderness [Recovered/Resolved]
